FAERS Safety Report 17860100 (Version 1)
Quarter: 2020Q2

REPORT INFORMATION
  Report Type: Spontaneous
  Country: US (occurrence: US)
  Receive Date: 20200604
  Receipt Date: 20200604
  Transmission Date: 20200714
  Serious: Yes (Hospitalization)
  Sender: FDA-Public Use
  Company Number: None

PATIENT
  Age: 56 Year
  Sex: Female
  Weight: 85.7 kg

DRUGS (4)
  1. CEFTRIAXONE. [Concomitant]
     Active Substance: CEFTRIAXONE
     Dates: start: 20200518, end: 20200524
  2. REMDESIVIR. [Suspect]
     Active Substance: REMDESIVIR
     Indication: COVID-19
     Route: 041
     Dates: start: 20200520, end: 20200521
  3. NOREPINEPHRINE. [Concomitant]
     Active Substance: NOREPINEPHRINE
     Dates: start: 20200521, end: 20200523
  4. AZITHROMYCIN ANHYDROUS. [Concomitant]
     Active Substance: AZITHROMYCIN ANHYDROUS
     Dates: start: 20200518, end: 20200522

REACTIONS (8)
  - Alanine aminotransferase decreased [None]
  - Septic shock [None]
  - Acute kidney injury [None]
  - Renal impairment [None]
  - Respiratory failure [None]
  - Renal ischaemia [None]
  - Nephropathy toxic [None]
  - COVID-19 pneumonia [None]

NARRATIVE: CASE EVENT DATE: 20200520
